FAERS Safety Report 5716393-9 (Version None)
Quarter: 2008Q2

REPORT INFORMATION
  Report Type: 
  Country: None (occurrence: None)
  Receive Date: 20080424
  Receipt Date: 20080416
  Transmission Date: 20081010
  Serious: Yes (Other)
  Sender: FDA-Public Use
  Company Number: PHFR2003GB03010

PATIENT
  Age: 30 Year
  Sex: Male

DRUGS (8)
  1. BENZTROPEINE [Concomitant]
     Dosage: 2 MG, BID
     Route: 048
  2. ALCOHOL [Suspect]
  3. CLOZARIL [Suspect]
     Indication: SCHIZOPHRENIA
     Dosage: 100MG AM + 300MG PM
     Route: 048
     Dates: start: 19990401
  4. CLOZARIL [Suspect]
     Dosage: 600MG/EVENING DOSE
     Route: 048
     Dates: start: 20030728
  5. CLOZARIL [Suspect]
     Dosage: 700 MG OVERDOSE
     Dates: start: 20031020
  6. CLOZARIL [Suspect]
     Dosage: 350MG / DAY
     Route: 048
  7. CITALOPRAM HYDROBROMIDE [Concomitant]
     Indication: MOOD ALTERED
     Dosage: 20MG / DAY
     Route: 048
  8. BENZHEXOL [Concomitant]
     Indication: SALIVARY HYPERSECRETION
     Dosage: 4MG / DAY
     Route: 048

REACTIONS (7)
  - BLOOD PRESSURE INCREASED [None]
  - BODY TEMPERATURE DECREASED [None]
  - HEART RATE INCREASED [None]
  - INCORRECT DOSE ADMINISTERED [None]
  - OVERDOSE [None]
  - SOMNOLENCE [None]
  - TREATMENT NONCOMPLIANCE [None]
